FAERS Safety Report 7423285-6 (Version None)
Quarter: 2011Q2

REPORT INFORMATION
  Report Type: 
  Country: None (occurrence: None)
  Receive Date: 20110419
  Receipt Date: 20101118
  Transmission Date: 20111010
  Serious: Yes (Hospitalization)
  Sender: FDA-Public Use
  Company Number: US-BAYER-201033395NA

PATIENT
  Sex: Female
  Weight: 46.259 kg

DRUGS (10)
  1. CLONIDINE HYDROCHLORIDE [Concomitant]
     Dosage: UNK
     Dates: start: 20070110
  2. IBUPROFEN [Concomitant]
  3. ADDERALL 10 [Concomitant]
     Dosage: UNK
     Dates: start: 20061201
  4. YASMIN [Suspect]
     Indication: OVARIAN CYST
  5. YASMIN [Suspect]
     Indication: CONTRACEPTION
     Route: 065
     Dates: start: 20070601, end: 20080715
  6. YAZ [Suspect]
     Indication: OVARIAN CYST
  7. ZOLPIDEM TARTRATE [Concomitant]
  8. YAZ [Suspect]
     Indication: CONTRACEPTION
     Route: 065
     Dates: start: 20080801, end: 20100615
  9. NAPROXEN [Concomitant]
  10. AMPHETAMINE AND DEXTROAMPHETAMINE SALTS [Concomitant]

REACTIONS (3)
  - GALLBLADDER DISORDER [None]
  - CHOLECYSTITIS ACUTE [None]
  - CHOLECYSTITIS CHRONIC [None]
